FAERS Safety Report 6923423-5 (Version None)
Quarter: 2010Q3

REPORT INFORMATION
  Report Type: 
  Country: None (occurrence: None)
  Receive Date: 20100813
  Receipt Date: 20100805
  Transmission Date: 20110219
  Serious: Yes (Other)
  Sender: FDA-Public Use
  Company Number: FR-PFIZER INC-2010098298

PATIENT
  Age: 36 Year
  Sex: Male

DRUGS (1)
  1. PRODILANTIN [Suspect]
     Indication: FEBRILE CONVULSION
     Dosage: UNK
     Route: 042
     Dates: start: 20100718, end: 20100721

REACTIONS (2)
  - CYTOLYTIC HEPATITIS [None]
  - FACTOR V DEFICIENCY [None]
